FAERS Safety Report 8286489-9 (Version None)
Quarter: 2012Q2

REPORT INFORMATION
  Report Type: 
  Country: None (occurrence: None)
  Receive Date: 20120411
  Receipt Date: 20120411
  Transmission Date: 20120825
  Serious: Yes (Other)
  Sender: FDA-Public Use
  Company Number: None

PATIENT
  Sex: Female
  Weight: 61.2356 kg

DRUGS (2)
  1. AZITHROMYCIN [Suspect]
     Indication: BRONCHITIS
     Dosage: 500MG 1 PER DAY ORAL
     Route: 048
     Dates: start: 20120130
  2. OXYCODONE HCL [Suspect]
     Indication: PAIN
     Dosage: 10MG 1-2 4X DAILY ORAL
     Route: 048
     Dates: start: 20120209

REACTIONS (4)
  - DRUG INEFFECTIVE [None]
  - PRODUCT SUBSTITUTION ISSUE [None]
  - SKIN DISORDER [None]
  - DRUG HYPERSENSITIVITY [None]
